FAERS Safety Report 7504716-X (Version None)
Quarter: 2011Q2

REPORT INFORMATION
  Report Type: 
  Country: None (occurrence: None)
  Receive Date: 20110525
  Receipt Date: 20110427
  Transmission Date: 20111010
  Serious: No
  Sender: FDA-Public Use
  Company Number: US-AMGEN-USASP2011022183

PATIENT
  Age: 61 Year
  Sex: Male

DRUGS (1)
  1. NPLATE [Suspect]
     Indication: THROMBOCYTOPENIA
     Dosage: 1 A?G/KG, UNK
     Dates: start: 20090430, end: 20100715

REACTIONS (1)
  - ARTHRALGIA [None]
